FAERS Safety Report 19476754 (Version 1)
Quarter: 2021Q2

REPORT INFORMATION
  Report Type: Other
  Country: GB (occurrence: GB)
  Receive Date: 20210630
  Receipt Date: 20210630
  Transmission Date: 20210717
  Serious: Yes (Other)
  Sender: FDA-Public Use
  Company Number: GB-EMD SERONO-9246762

PATIENT
  Age: 66 Year
  Sex: Male

DRUGS (2)
  1. AVELUMAB [Suspect]
     Active Substance: AVELUMAB
     Indication: NEUROENDOCRINE CARCINOMA OF THE SKIN
     Dosage: 25 CYCLES OF TREATMENT
     Dates: start: 20171226, end: 201901
  2. AVELUMAB [Suspect]
     Active Substance: AVELUMAB
     Dates: start: 201907, end: 201909

REACTIONS (1)
  - Disease progression [Recovering/Resolving]

NARRATIVE: CASE EVENT DATE: 201907
